FAERS Safety Report 22966751 (Version 2)
Quarter: 2023Q4

REPORT INFORMATION
  Report Type: Spontaneous
  Country: US (occurrence: US)
  Receive Date: 20230921
  Receipt Date: 20231020
  Transmission Date: 20240110
  Serious: No
  Sender: FDA-Public Use
  Company Number: US-PFIZER INC-202300304639

PATIENT
  Age: 62 Year
  Sex: Male
  Weight: 95.25 kg

DRUGS (1)
  1. PAXLOVID [Suspect]
     Active Substance: NIRMATRELVIR\RITONAVIR
     Indication: COVID-19 treatment
     Dosage: 3 DF (ONE WAS WHITE AND THE OTHER TWO WERE PINK)
     Dates: start: 20230906

REACTIONS (3)
  - Cough [Unknown]
  - Paranasal sinus hypersecretion [Unknown]
  - Secretion discharge [Unknown]
